FAERS Safety Report 7772336-8 (Version None)
Quarter: 2011Q3

REPORT INFORMATION
  Report Type: 
  Country: None (occurrence: None)
  Receive Date: 20110922
  Receipt Date: 20100816
  Transmission Date: 20111222
  Serious: Yes (Other)
  Sender: FDA-Public Use
  Company Number: US-ASTRAZENECA-2007UW09677

PATIENT
  Age: 573 Month
  Sex: Female
  Weight: 88.5 kg

DRUGS (30)
  1. CELEBREX [Concomitant]
     Dosage: 200 MG AS REQUIRED
     Dates: start: 20010802
  2. BUSPAR [Concomitant]
     Indication: GENERALISED ANXIETY DISORDER
     Dosage: 15 MG - 100 MG
     Route: 048
     Dates: start: 20010802
  3. ATARAX [Concomitant]
     Indication: PRURITUS
     Dates: start: 20020212
  4. ADVAIR DISKUS 100/50 [Concomitant]
     Indication: ASTHMA
     Dosage: 250/50 ONE INHALATION EVERY 12 HOURS
     Dates: start: 20021108
  5. PAXIL [Concomitant]
     Dosage: 20 MG - 37.5 MG
     Dates: start: 20040112
  6. AMBIEN [Concomitant]
  7. SEROQUEL [Suspect]
     Indication: BIPOLAR DISORDER
     Dosage: 25-300 MG
     Route: 048
     Dates: start: 19990101, end: 20050101
  8. SEROQUEL [Suspect]
     Dosage: 300 MG - 600 MG
     Route: 048
     Dates: start: 20050310
  9. XENICAL [Concomitant]
     Indication: OBESITY
     Dates: start: 20011101, end: 20011116
  10. ABILIFY [Concomitant]
     Dates: start: 20050101
  11. SEROQUEL [Suspect]
     Indication: SCHIZOPHRENIA
     Dosage: 25-300 MG
     Route: 048
     Dates: start: 19990101, end: 20050101
  12. SEROQUEL [Suspect]
     Dosage: 25-200 MG
     Route: 048
     Dates: start: 20000107, end: 20060601
  13. SEROQUEL [Suspect]
     Dosage: 300 MG - 600 MG
     Route: 048
     Dates: start: 20050310
  14. TEQUIN [Concomitant]
     Indication: URINARY TRACT INFECTION
     Dates: start: 20020212
  15. SEROQUEL [Suspect]
     Dosage: 300 MG - 600 MG
     Route: 048
     Dates: start: 20050310
  16. GUAIFENESIN [Concomitant]
     Indication: BRONCHITIS
     Route: 048
     Dates: start: 20010907
  17. SEROQUEL [Suspect]
     Dosage: 25-200 MG
     Route: 048
     Dates: start: 20000107, end: 20060601
  18. ZYRTEC [Concomitant]
     Indication: RHINITIS ALLERGIC
     Dates: start: 20011116
  19. TEQUIN [Concomitant]
     Indication: UPPER RESPIRATORY TRACT INFECTION
     Dates: start: 20020212
  20. DIFLUCAN [Concomitant]
     Indication: VULVOVAGINAL CANDIDIASIS
     Dates: start: 20020212
  21. GUAIFENESIN [Concomitant]
     Indication: UPPER RESPIRATORY TRACT INFECTION
     Route: 048
     Dates: start: 20010907
  22. BUSPAR [Concomitant]
     Indication: PANIC DISORDER
     Dosage: 15 MG - 100 MG
     Route: 048
     Dates: start: 20010802
  23. AUGMENTIN '125' [Concomitant]
     Indication: LYMPHADENOPATHY
     Route: 048
     Dates: start: 20011116
  24. ZYRTEC [Concomitant]
     Indication: ACUTE SINUSITIS
     Dates: start: 20011116
  25. TEQUIN [Concomitant]
     Indication: BRONCHITIS
     Dates: start: 20020212
  26. DEPAKOTE [Concomitant]
  27. SEROQUEL [Suspect]
     Indication: DEPRESSION
     Dosage: 25-300 MG
     Route: 048
     Dates: start: 19990101, end: 20050101
  28. SEROQUEL [Suspect]
     Dosage: 25-200 MG
     Route: 048
     Dates: start: 20000107, end: 20060601
  29. AUGMENTIN '125' [Concomitant]
     Indication: ACUTE SINUSITIS
     Route: 048
     Dates: start: 20011116
  30. SINGULAIR [Concomitant]
     Indication: ASTHMA
     Dates: start: 20021108

REACTIONS (9)
  - HYPERGLYCAEMIA [None]
  - PANCREATITIS [None]
  - DIABETES MELLITUS INADEQUATE CONTROL [None]
  - SEDATION [None]
  - HYPERLIPIDAEMIA [None]
  - BLOOD TRIGLYCERIDES INCREASED [None]
  - OBESITY [None]
  - BLOOD CHOLESTEROL INCREASED [None]
  - TYPE 2 DIABETES MELLITUS [None]
